FAERS Safety Report 18221939 (Version 3)
Quarter: 2021Q1

REPORT INFORMATION
  Report Type: Report from Study
  Country: None (occurrence: US)
  Receive Date: 20200902
  Receipt Date: 20210330
  Transmission Date: 20210419
  Serious: Yes (Other)
  Sender: FDA-Public Use
  Company Number: US-ABBVIE-20K-163-3545940-00

PATIENT
  Sex: Female

DRUGS (2)
  1. RINVOQ [Suspect]
     Active Substance: UPADACITINIB
     Indication: RHEUMATOID ARTHRITIS
     Route: 048
  2. HUMIRA [Suspect]
     Active Substance: ADALIMUMAB
     Indication: PRODUCT USED FOR UNKNOWN INDICATION
     Route: 058

REACTIONS (11)
  - Alopecia [Unknown]
  - Rheumatoid arthritis [Unknown]
  - Myocardial infarction [Recovered/Resolved]
  - Cough [Unknown]
  - Fatigue [Unknown]
  - Illness [Recovering/Resolving]
  - Thyroid disorder [Unknown]
  - Weight decreased [Unknown]
  - Myocardial infarction [Unknown]
  - Systemic lupus erythematosus [Not Recovered/Not Resolved]
  - Hypophagia [Unknown]

NARRATIVE: CASE EVENT DATE: 2010
